FAERS Safety Report 4620940-8 (Version None)
Quarter: 2005Q1

REPORT INFORMATION
  Report Type: 
  Country: None (occurrence: None)
  Receive Date: 20050325
  Receipt Date: 20050309
  Transmission Date: 20050727
  Serious: Yes (Hospitalization)
  Sender: FDA-Public Use
  Company Number: F01200500384

PATIENT
  Age: 60 Year
  Sex: Male

DRUGS (2)
  1. (OXALIPLATIN) - SOLUTION - 85 MG/M2 [Suspect]
     Indication: COLORECTAL CANCER METASTATIC
     Dosage: 150 MG Q2W (CUMULATIVE DOSE: 750 MG), INTRAVENOUS NOS
     Route: 042
     Dates: start: 20050207, end: 20050207
  2. (IRINOTECAN) - SOLUTION - 180 MG/M2 [Suspect]
     Dosage: 260 MG Q2W (CUMULATIVE DOSE:  1320 MG), INTRAVENOUS NOS
     Route: 042
     Dates: start: 20050207, end: 20050207

REACTIONS (2)
  - ASTHENIA [None]
  - LOSS OF CONSCIOUSNESS [None]
